FAERS Safety Report 8011694-6 (Version None)
Quarter: 2011Q4

REPORT INFORMATION
  Report Type: 
  Country: None (occurrence: None)
  Receive Date: 20111228
  Receipt Date: 20111220
  Transmission Date: 20120403
  Serious: Yes (Other)
  Sender: FDA-Public Use
  Company Number: FR-BAYER-2011-051779

PATIENT
  Sex: Female
  Weight: 69 kg

DRUGS (5)
  1. MIRENA [Suspect]
     Indication: CONTRACEPTION
     Dosage: UNK
     Route: 015
     Dates: start: 20051201, end: 20101201
  2. IMOVANE [Concomitant]
     Indication: DEPRESSION
  3. EZETIMIBE [Concomitant]
     Indication: HYPERCHOLESTEROLAEMIA
  4. FLUVASTATIN SODIUM [Concomitant]
     Indication: HYPERCHOLESTEROLAEMIA
  5. MIRENA [Suspect]
     Dosage: UNK

REACTIONS (1)
  - BREAST CANCER STAGE I [None]
